FAERS Safety Report 11805798 (Version 1)
Quarter: 2015Q4

REPORT INFORMATION
  Report Type: Spontaneous
  Country: JP (occurrence: JP)
  Receive Date: 20151207
  Receipt Date: 20151207
  Transmission Date: 20160305
  Serious: Yes (Other)
  Sender: FDA-Public Use
  Company Number: JP-VIFOR (INTERNATIONAL) INC.-VIT-2015-03396

PATIENT
  Age: 86 Year
  Sex: Male
  Weight: 49 kg

DRUGS (1)
  1. MIRCERA [Suspect]
     Active Substance: METHOXY POLYETHYLENE GLYCOL-EPOETIN BETA
     Indication: NEPHROGENIC ANAEMIA
     Route: 058
     Dates: start: 201410, end: 201505

REACTIONS (3)
  - Inflammation [Unknown]
  - Anaemia [Not Recovered/Not Resolved]
  - Lung abscess [Unknown]

NARRATIVE: CASE EVENT DATE: 20150511
